FAERS Safety Report 4883719-8 (Version None)
Quarter: 2006Q1

REPORT INFORMATION
  Report Type: 
  Country: None (occurrence: None)
  Receive Date: 20060118
  Receipt Date: 20060109
  Transmission Date: 20060701
  Serious: Yes (Hospitalization)
  Sender: FDA-Public Use
  Company Number: US-BRISTOL-MYERS SQUIBB COMPANY-13241013

PATIENT
  Age: 62 Year
  Sex: Male

DRUGS (1)
  1. DEFINITY [Suspect]
     Route: 040
     Dates: start: 20051222, end: 20051222

REACTIONS (4)
  - ASTHENIA [None]
  - CONVULSION [None]
  - DYSPNOEA [None]
  - OXYGEN SATURATION DECREASED [None]
